FAERS Safety Report 6530729-0 (Version None)
Quarter: 2010Q1

REPORT INFORMATION
  Report Type: 
  Country: None (occurrence: None)
  Receive Date: 20100108
  Receipt Date: 20081218
  Transmission Date: 20100710
  Serious: No
  Sender: FDA-Public Use
  Company Number: A0761082A

PATIENT
  Age: 72 Year
  Sex: Male

DRUGS (1)
  1. LOVAZA [Suspect]
     Indication: DRUG USE FOR UNKNOWN INDICATION
     Dosage: 2CAP TWICE PER DAY
     Route: 048
     Dates: start: 20081107, end: 20081107

REACTIONS (1)
  - NAUSEA [None]
